FAERS Safety Report 8328321 (Version 2)
Quarter: 2012Q4

REPORT INFORMATION
  Report Type: 
  Country: IT (occurrence: IT)
  Receive Date: 20120110
  Receipt Date: 20120921
  Transmission Date: 20130627
  Serious: Yes (Hospitalization)
  Sender: FDA-Public Use
  Company Number: IT-JNJFOC-20120101569

PATIENT
  Age: 90 Year
  Sex: Female

DRUGS (7)
  1. LEVOXACIN [Suspect]
     Indication: INFECTIVE EXACERBATION OF CHRONIC OBSTRUCTIVE AIRWAYS DISEASE
     Route: 048
     Dates: start: 20111220, end: 20111225
  2. LASIX [Concomitant]
     Route: 065
  3. LIMPIDEX [Concomitant]
     Route: 065
  4. CARDIOASPIRIN [Concomitant]
     Route: 065
  5. CLENIL [Concomitant]
     Route: 065
  6. OXIVENT [Concomitant]
     Route: 065
  7. AMBROMUCIL [Concomitant]
     Route: 065

REACTIONS (1)
  - Epilepsy [Recovering/Resolving]
